FAERS Safety Report 4311639-6 (Version None)
Quarter: 2004Q1

REPORT INFORMATION
  Report Type: 
  Country: None (occurrence: None)
  Receive Date: 20040304
  Receipt Date: 20040226
  Transmission Date: 20041129
  Serious: Yes (Hospitalization)
  Sender: FDA-Public Use
  Company Number: WAES 0402USA02027

PATIENT

DRUGS (1)
  1. STROMECTOL [Suspect]
     Route: 048
     Dates: start: 20031211, end: 20031211

REACTIONS (2)
  - ASTHENIA [None]
  - HAEMOPTYSIS [None]
